FAERS Safety Report 7294293-3 (Version None)
Quarter: 2011Q1

REPORT INFORMATION
  Report Type: 
  Country: None (occurrence: None)
  Receive Date: 20110215
  Receipt Date: 20110209
  Transmission Date: 20110831
  Serious: Yes (Other)
  Sender: FDA-Public Use
  Company Number: US-RB-022080-11

PATIENT
  Sex: Female

DRUGS (6)
  1. ALBUTEROL [Concomitant]
     Dosage: 1-2 PUFFS AS NEEDED
     Route: 055
  2. SUBOXONE [Suspect]
     Route: 060
     Dates: start: 20110209
  3. THEOPHYLLINE [Concomitant]
     Indication: ASTHMA
     Route: 065
  4. SUBOXONE [Suspect]
     Indication: DRUG DEPENDENCE
     Route: 060
     Dates: start: 20110204, end: 20110204
  5. SUBOXONE [Suspect]
     Indication: DRUG DEPENDENCE
     Route: 060
     Dates: start: 20110205, end: 20110208
  6. ALBUTEROL [Concomitant]
     Indication: ASTHMA
     Dosage: DOSING DETAILS UNKNOWN
     Route: 055

REACTIONS (4)
  - FEELING ABNORMAL [None]
  - SOMNOLENCE [None]
  - HALLUCINATION [None]
  - INSOMNIA [None]
